FAERS Safety Report 7944413-X (Version None)
Quarter: 2011Q4

REPORT INFORMATION
  Report Type: 
  Country: None (occurrence: None)
  Receive Date: 20111129
  Receipt Date: 20100126
  Transmission Date: 20120403
  Serious: No
  Sender: FDA-Public Use
  Company Number: 2010BI002927

PATIENT
  Sex: Female

DRUGS (3)
  1. TYSABRI [Suspect]
     Route: 042
     Dates: start: 20081002, end: 20110602
  2. TYSABRI [Suspect]
     Indication: MULTIPLE SCLEROSIS
     Route: 042
     Dates: start: 20061201, end: 20080501
  3. TYSABRI [Suspect]
     Route: 042
     Dates: start: 20111117

REACTIONS (3)
  - NERVOUSNESS [None]
  - MULTIPLE SCLEROSIS [None]
  - BALANCE DISORDER [None]
